FAERS Safety Report 6885927-3 (Version None)
Quarter: 2010Q3

REPORT INFORMATION
  Report Type: 
  Country: None (occurrence: None)
  Receive Date: 20100729
  Receipt Date: 20080623
  Transmission Date: 20110219
  Serious: Yes (Other)
  Sender: FDA-Public Use
  Company Number: US-PFIZER INC-2008036748

PATIENT
  Sex: Female
  Weight: 160 kg

DRUGS (5)
  1. CELEBREX [Suspect]
     Indication: ARTHRITIS
     Dates: start: 19980101
  2. SIMVASTATIN [Concomitant]
     Indication: BLOOD CHOLESTEROL INCREASED
  3. ALL OTHER THERAPEUTIC PRODUCTS [Concomitant]
  4. GLUCOSAMINE [Concomitant]
  5. ACTONEL [Concomitant]

REACTIONS (3)
  - DYSPEPSIA [None]
  - GASTRIC DISORDER [None]
  - ULCER [None]
